FAERS Safety Report 10713409 (Version 1)
Quarter: 2015Q1

REPORT INFORMATION
  Report Type: Spontaneous
  Country: US (occurrence: None)
  Receive Date: 20150114
  Receipt Date: 20150114
  Transmission Date: 20150721
  Serious: No
  Sender: FDA-Public Use
  Company Number: None

PATIENT
  Age: 40 Year
  Sex: Male
  Weight: 62.14 kg

DRUGS (2)
  1. TOPIRAMATE. [Suspect]
     Active Substance: TOPIRAMATE
     Indication: MIGRAINE
     Route: 048
  2. TRIAMCINOLONE ACETONIDE EXTERNAL CREAM [Concomitant]

REACTIONS (4)
  - Product substitution issue [None]
  - Migraine [None]
  - Treatment failure [None]
  - Economic problem [None]
